FAERS Safety Report 7080375-8 (Version None)
Quarter: 2010Q4

REPORT INFORMATION
  Report Type: 
  Country: None (occurrence: None)
  Receive Date: 20101103
  Receipt Date: 20101027
  Transmission Date: 20110411
  Serious: Yes (Life-Threatening)
  Sender: FDA-Public Use
  Company Number: GB-TEVA-250275ISR

PATIENT
  Age: 88 Year
  Sex: Male
  Weight: 74 kg

DRUGS (2)
  1. METFORMIN [Suspect]
     Route: 048
     Dates: start: 19980101, end: 20100910
  2. OMEPRAZOLE [Suspect]
     Dates: start: 20100615

REACTIONS (3)
  - DRUG INTERACTION [None]
  - HYPERKALAEMIA [None]
  - RENAL TUBULAR ACIDOSIS [None]
